FAERS Safety Report 6453706-7 (Version None)
Quarter: 2009Q4

REPORT INFORMATION
  Report Type: 
  Country: None (occurrence: None)
  Receive Date: 20091124
  Receipt Date: 20091113
  Transmission Date: 20100525
  Serious: Yes (Other)
  Sender: FDA-Public Use
  Company Number: CA-JNJFOC-20091104387

PATIENT
  Age: 51 Year
  Sex: Male
  Weight: 49.9 kg

DRUGS (13)
  1. PREZISTA [Suspect]
     Indication: HIV INFECTION
     Route: 048
     Dates: start: 20091029, end: 20091029
  2. INTELENCE [Interacting]
     Indication: HIV INFECTION
     Route: 048
     Dates: start: 20091029, end: 20091029
  3. RITONAVIR [Interacting]
     Indication: HIV INFECTION
     Dates: start: 20091029, end: 20091029
  4. 3TC [Concomitant]
     Indication: HIV INFECTION
  5. HUMALOG [Concomitant]
     Route: 058
  6. LANTUS [Concomitant]
     Route: 058
  7. RAMIPRIL [Concomitant]
  8. ASPIRIN [Concomitant]
  9. VENTOLIN [Concomitant]
  10. ADVAIR DISKUS 100/50 [Concomitant]
  11. M.V.I. [Concomitant]
  12. CLARITIN [Concomitant]
     Route: 048
  13. FLUCONAZOLE [Concomitant]

REACTIONS (2)
  - DRUG INTERACTION [None]
  - HYPERGLYCAEMIA [None]
